FAERS Safety Report 4920386-9 (Version None)
Quarter: 2006Q1

REPORT INFORMATION
  Report Type: 
  Country: None (occurrence: None)
  Receive Date: 20060223
  Receipt Date: 20050829
  Transmission Date: 20060701
  Serious: Yes (Hospitalization)
  Sender: FDA-Public Use
  Company Number: US-MERCK-0508USA05095

PATIENT
  Age: 78 Year
  Sex: Male
  Weight: 95 kg

DRUGS (6)
  1. VIOXX [Suspect]
     Indication: ARTHRALGIA
     Route: 048
     Dates: start: 20010907, end: 20040707
  2. VIOXX [Suspect]
     Indication: PAIN IN EXTREMITY
     Route: 048
     Dates: start: 20010907, end: 20040707
  3. ACTOS [Concomitant]
     Route: 065
  4. COUMADIN [Concomitant]
     Route: 065
  5. FLOMAX (MORNIFLUMATE) [Concomitant]
     Route: 065
  6. VITAMINS (UNSPECIFIED) [Concomitant]
     Route: 065

REACTIONS (26)
  - ADRENAL HAEMORRHAGE [None]
  - ADRENAL MASS [None]
  - ATRIAL FIBRILLATION [None]
  - CARDIAC DISORDER [None]
  - CAROTID ARTERY STENOSIS [None]
  - CONSTIPATION [None]
  - CORONARY ARTERY DISEASE [None]
  - DEPRESSION [None]
  - DIZZINESS [None]
  - DIZZINESS POSTURAL [None]
  - FALL [None]
  - GANGRENE [None]
  - HAEMORRHAGE [None]
  - HEAD INJURY [None]
  - HYPERTENSION [None]
  - ISCHAEMIA [None]
  - MYOCARDIAL INFARCTION [None]
  - MYOCARDIAL ISCHAEMIA [None]
  - ORTHOSTATIC HYPOTENSION [None]
  - PLEURAL EFFUSION [None]
  - PROSTATE CANCER [None]
  - SKIN LESION [None]
  - SKIN ULCER [None]
  - TRANSIENT ISCHAEMIC ATTACK [None]
  - ULCER HAEMORRHAGE [None]
  - VISUAL ACUITY REDUCED [None]
